FAERS Safety Report 10698440 (Version 1)
Quarter: 2014Q4

REPORT INFORMATION
  Report Type: Spontaneous
  Country: IT (occurrence: None)
  Receive Date: 20141217
  Receipt Date: 20141217
  Transmission Date: 20150529
  Serious: No
  Sender: FDA-Public Use
  Company Number: 2014-IT-011324

PATIENT
  Age: 3 Year

DRUGS (1)
  1. ERWINASE (ASPARAGINASE ERWINIA CHRYSANTHEMI) INJECTION [Suspect]
     Active Substance: ASPARAGINASE ERWINIA CHRYSANTHEMI

REACTIONS (1)
  - Hypersensitivity [None]
